FAERS Safety Report 15318903 (Version 1)
Quarter: 2018Q3

REPORT INFORMATION
  Report Type: Spontaneous
  Country: US (occurrence: US)
  Receive Date: 20180820
  Receipt Date: 20180820
  Transmission Date: 20181010
  Serious: No
  Sender: FDA-Public Use
  Company Number: None

PATIENT
  Age: 40 Year
  Sex: Female

DRUGS (1)
  1. ORENCIA [Suspect]
     Active Substance: ABATACEPT
     Route: 058

REACTIONS (4)
  - Drug dose omission [None]
  - Injection site bruising [None]
  - Insurance issue [None]
  - Therapy change [None]

NARRATIVE: CASE EVENT DATE: 20180730
